FAERS Safety Report 7738071-7 (Version None)
Quarter: 2011Q3

REPORT INFORMATION
  Report Type: 
  Country: None (occurrence: None)
  Receive Date: 20110908
  Receipt Date: 20110824
  Transmission Date: 20111222
  Serious: Yes (Hospitalization, Other)
  Sender: FDA-Public Use
  Company Number: JP-BAYER-2011-077038

PATIENT
  Age: 85 Year
  Sex: Female
  Weight: 47 kg

DRUGS (3)
  1. ASPIRIN [Suspect]
     Indication: CEREBRAL INFARCTION
     Route: 048
  2. GLYCERIN [Concomitant]
     Indication: ENDOSCOPY LARGE BOWEL
     Dosage: DAILY DOSE 50 ML
     Route: 054
  3. PURGATIVES AND CLYSTERS [Concomitant]
     Indication: CONSTIPATION
     Route: 065

REACTIONS (2)
  - INTESTINAL ISCHAEMIA [None]
  - MELAENA [None]
